FAERS Safety Report 22356349 (Version 2)
Quarter: 2025Q4

REPORT INFORMATION
  Report Type: Spontaneous
  Country: US (occurrence: US)
  Receive Date: 20230523
  Receipt Date: 20251012
  Transmission Date: 20260118
  Serious: No
  Sender: SANOFI AVENTIS
  Company Number: US-SA-SAC20230522001528

PATIENT
  Age: 20 Year
  Sex: Female

DRUGS (4)
  1. LARONIDASE [Suspect]
     Active Substance: LARONIDASE
     Indication: Mucopolysaccharidosis I
     Dosage: UNK
  2. LARONIDASE [Suspect]
     Active Substance: LARONIDASE
     Dosage: 31.9 MG, QW
     Route: 042
     Dates: start: 202505
  3. GENOTROPIN [Concomitant]
     Active Substance: SOMATROPIN
  4. SODIUM CHLORIDE [Concomitant]
     Active Substance: SODIUM CHLORIDE

REACTIONS (1)
  - Drug specific antibody present [Unknown]
